FAERS Safety Report 23964767 (Version 1)
Quarter: 2024Q2

REPORT INFORMATION
  Report Type: Report from Study
  Country: MX (occurrence: MX)
  Receive Date: 20240612
  Receipt Date: 20240612
  Transmission Date: 20240716
  Serious: Yes (Other)
  Sender: FDA-Public Use
  Company Number: MX-002147023-NVSC2024MX117476

PATIENT
  Sex: Female

DRUGS (1)
  1. TASIGNA [Suspect]
     Active Substance: NILOTINIB
     Indication: Chronic myeloid leukaemia
     Dosage: 800 MG, Q24H
     Route: 048

REACTIONS (4)
  - Acute febrile neutrophilic dermatosis [Unknown]
  - Hypersensitivity [Unknown]
  - Acne [Unknown]
  - Drug intolerance [Unknown]
